FAERS Safety Report 20060197 (Version 1)
Quarter: 2021Q4

REPORT INFORMATION
  Report Type: Report from Study
  Country: US (occurrence: US)
  Receive Date: 20211111
  Receipt Date: 20211111
  Transmission Date: 20220303
  Serious: Yes (Disabling, Other)
  Sender: FDA-Public Use
  Company Number: US-BoehringerIngelheim-2021-BI-080890

PATIENT
  Age: 71 Year
  Sex: Male

DRUGS (1)
  1. OFEV [Suspect]
     Active Substance: NINTEDANIB
     Indication: Idiopathic pulmonary fibrosis
     Dosage: FREQUENCY: 2 DAYS
     Route: 048

REACTIONS (10)
  - Haemoptysis [Not Recovered/Not Resolved]
  - Haematemesis [Recovering/Resolving]
  - Gastric haemorrhage [Not Recovered/Not Resolved]
  - Diarrhoea [Not Recovered/Not Resolved]
  - Dry skin [Unknown]
  - Pain [Unknown]
  - Abdominal distension [Unknown]
  - Weight decreased [Unknown]
  - Rash [Unknown]
  - Product dose omission in error [Unknown]

NARRATIVE: CASE EVENT DATE: 20200101
